FAERS Safety Report 7146021-X (Version None)
Quarter: 2010Q4

REPORT INFORMATION
  Report Type: 
  Country: None (occurrence: None)
  Receive Date: 20101123
  Receipt Date: 20101116
  Transmission Date: 20110411
  Serious: Yes (Hospitalization, Other)
  Sender: FDA-Public Use
  Company Number: DKLU1066396

PATIENT
  Age: 16 Month
  Sex: Male

DRUGS (7)
  1. SABRIL [Suspect]
     Indication: INFANTILE SPASMS
     Dosage: 250 MG MILLIGRAM(S), 2 IN 1 D, ORAL
     Route: 048
     Dates: start: 20101008, end: 20101111
  2. KLONOPIN [Concomitant]
  3. TOPAMAX [Concomitant]
  4. ACETAMINOPHEN [Concomitant]
  5. ZANTAC [Concomitant]
  6. MILK OF MAGNESIA TAB [Concomitant]
  7. NYSTATIN SUSPENSION (NYSTATIN) [Concomitant]

REACTIONS (4)
  - BITE [None]
  - CONVULSION [None]
  - HEART RATE DECREASED [None]
  - LETHARGY [None]
